FAERS Safety Report 7419915-5 (Version None)
Quarter: 2011Q2

REPORT INFORMATION
  Report Type: 
  Country: None (occurrence: None)
  Receive Date: 20110418
  Receipt Date: 20110413
  Transmission Date: 20111010
  Serious: Yes (Other)
  Sender: FDA-Public Use
  Company Number: JP-B.I. PHARMACEUTICALS,INC./RIDGEFIELD-2011-BP-10790NB

PATIENT
  Age: 60 Year
  Sex: Male

DRUGS (3)
  1. AMOBAN [Suspect]
     Indication: INSOMNIA
     Dosage: 7.5 MG
     Route: 048
  2. SPIRIVA [Suspect]
     Indication: CHRONIC OBSTRUCTIVE PULMONARY DISEASE
     Dosage: 5 MCG
     Route: 065
     Dates: start: 20110219
  3. ACTOS [Suspect]
     Indication: DIABETES MELLITUS
     Dosage: 30 MG
     Route: 048

REACTIONS (3)
  - URINARY RETENTION [None]
  - VISUAL FIELD DEFECT [None]
  - CONSTIPATION [None]
